FAERS Safety Report 6841300-5 (Version None)
Quarter: 2010Q3

REPORT INFORMATION
  Report Type: 
  Country: None (occurrence: None)
  Receive Date: 20100714
  Receipt Date: 20070905
  Transmission Date: 20110219
  Serious: No
  Sender: FDA-Public Use
  Company Number: US-PFIZER INC-2007055260

PATIENT
  Sex: Female
  Weight: 113.4 kg

DRUGS (1)
  1. CHANTIX [Suspect]
     Indication: SMOKING CESSATION THERAPY
     Dates: start: 20070630, end: 20070630

REACTIONS (5)
  - FEELING ABNORMAL [None]
  - MALAISE [None]
  - MIGRAINE [None]
  - NAUSEA [None]
  - VOMITING [None]
